FAERS Safety Report 24810021 (Version 1)
Quarter: 2025Q1

REPORT INFORMATION
  Report Type: Spontaneous
  Country: ES (occurrence: ES)
  Receive Date: 20250106
  Receipt Date: 20250106
  Transmission Date: 20250408
  Serious: Yes (Life-Threatening)
  Sender: FRESENIUS KABI
  Company Number: None

PATIENT
  Age: 67 Year
  Sex: Male

DRUGS (6)
  1. ACETAMINOPHEN [Suspect]
     Active Substance: ACETAMINOPHEN
     Indication: Surgery
     Route: 042
     Dates: start: 20241106, end: 20241106
  2. MIDAZOLAM [Suspect]
     Active Substance: MIDAZOLAM
     Indication: Surgery
     Route: 042
     Dates: start: 20241106, end: 20241106
  3. FENTANYL [Suspect]
     Active Substance: FENTANYL
     Indication: Surgery
     Route: 042
     Dates: start: 20241106, end: 20241106
  4. ARTICAINE\EPINEPHRINE [Suspect]
     Active Substance: ARTICAINE\EPINEPHRINE
     Indication: Surgery
     Route: 053
     Dates: start: 20241106, end: 20241106
  5. AMOXICILLIN [Suspect]
     Active Substance: AMOXICILLIN
     Indication: Surgery
     Route: 042
     Dates: start: 20241106, end: 20241106
  6. METAMIZOLE [Suspect]
     Active Substance: METAMIZOLE
     Indication: Surgery
     Route: 042
     Dates: start: 20241106, end: 20241106

REACTIONS (2)
  - Anaphylactic shock [Recovered/Resolved]
  - Kounis syndrome [Recovered/Resolved]

NARRATIVE: CASE EVENT DATE: 20241106
